FAERS Safety Report 15206919 (Version 1)
Quarter: 2018Q3

REPORT INFORMATION
  Report Type: Spontaneous
  Country: DE (occurrence: DE)
  Receive Date: 20180727
  Receipt Date: 20180727
  Transmission Date: 20181010
  Serious: Yes (Death)
  Sender: FDA-Public Use
  Company Number: DE-ACCORD-070108

PATIENT
  Age: 66 Year
  Sex: Male
  Weight: 75 kg

DRUGS (4)
  1. FOLINIC ACID [Suspect]
     Active Substance: LEUCOVORIN
     Indication: SMALL INTESTINE ADENOCARCINOMA
     Route: 042
     Dates: start: 20161122, end: 20170314
  2. FLUOROURACIL. [Suspect]
     Active Substance: FLUOROURACIL
     Indication: SMALL INTESTINE ADENOCARCINOMA
     Dosage: ALSO VIA INTRAVENOUS DRIP
     Route: 040
     Dates: start: 20161122, end: 20170314
  3. BEVACIZUMAB. [Suspect]
     Active Substance: BEVACIZUMAB
     Indication: SMALL INTESTINE ADENOCARCINOMA
     Route: 042
     Dates: start: 20161122, end: 20170314
  4. AXINOTECAN [Suspect]
     Active Substance: IRINOTECAN HYDROCHLORIDE
     Indication: SMALL INTESTINE ADENOCARCINOMA
     Route: 042
     Dates: start: 20161122, end: 20170314

REACTIONS (1)
  - Neoplasm progression [Fatal]
